FAERS Safety Report 4854409-2 (Version None)
Quarter: 2005Q4

REPORT INFORMATION
  Report Type: 
  Country: None (occurrence: None)
  Receive Date: 20051215
  Receipt Date: 20050831
  Transmission Date: 20060501
  Serious: Yes (Other)
  Sender: FDA-Public Use
  Company Number: PHBS2005CA12871

PATIENT
  Age: 21 Year
  Sex: Male

DRUGS (3)
  1. CLOZARIL [Suspect]
     Dosage: 500 MG, QD
     Route: 048
     Dates: start: 20030827, end: 20050903
  2. CLONAZEPAM [Concomitant]
     Dosage: 0.5 MG, PRN
     Dates: start: 20041101
  3. HALOPERIDOL [Concomitant]
     Dosage: 2 MG, QMO
     Dates: start: 20050501

REACTIONS (4)
  - ANXIETY [None]
  - CHEST DISCOMFORT [None]
  - EJECTION FRACTION DECREASED [None]
  - PALPITATIONS [None]
